FAERS Safety Report 9229937 (Version 1)
Quarter: 2013Q2

REPORT INFORMATION
  Report Type: Spontaneous
  Country: US (occurrence: US)
  Receive Date: 20130415
  Receipt Date: 20130415
  Transmission Date: 20140414
  Serious: No
  Sender: FDA-Public Use
  Company Number: US-009507513-1304USA003142

PATIENT
  Age: 62 Year
  Sex: Female

DRUGS (1)
  1. PEGINTRON [Suspect]
     Indication: HEPATITIS C
     Dosage: 80 MCG/0.5 ML, 1 STANDARD DOSE OF 1
     Route: 058

REACTIONS (3)
  - Injection site erythema [Unknown]
  - Product quality issue [Unknown]
  - Drug dose omission [Unknown]
